FAERS Safety Report 9287088 (Version 3)
Quarter: 2013Q4

REPORT INFORMATION
  Report Type: Spontaneous
  Country: US (occurrence: US)
  Receive Date: 20130513
  Receipt Date: 20131104
  Transmission Date: 20140711
  Serious: Yes (Hospitalization)
  Sender: FDA-Public Use
  Company Number: US-B.I. PHARMACEUTICALS,INC./RIDGEFIELD-2013-BI-13273BP

PATIENT
  Age: 73 Year
  Sex: Female
  Weight: 53.52 kg

DRUGS (10)
  1. PRADAXA [Suspect]
     Indication: ANTICOAGULANT THERAPY
     Dosage: 300 MG
     Dates: start: 20120210, end: 20120415
  2. PRADAXA [Suspect]
     Indication: ATRIAL FIBRILLATION
  3. TOPROL [Concomitant]
     Dosage: 200 MG
     Dates: start: 1990
  4. PRININVIL [Concomitant]
     Dosage: 20 MG
     Dates: start: 1997
  5. CALCIUM WITH VITAMIN D [Concomitant]
  6. CARDIZEM [Concomitant]
     Dosage: 120 MG
  7. LASIX [Concomitant]
     Dosage: 20 MG
  8. MAGNESIUM OXIDE [Concomitant]
  9. ALDACTONE [Concomitant]
     Dosage: 12.5 MG
  10. TYLENOL [Concomitant]

REACTIONS (5)
  - Upper gastrointestinal haemorrhage [Recovered/Resolved]
  - Lower gastrointestinal haemorrhage [Recovered/Resolved]
  - Haemorrhagic anaemia [Unknown]
  - Renal failure acute [Not Recovered/Not Resolved]
  - Coagulopathy [Unknown]
